FAERS Safety Report 26112408 (Version 1)
Quarter: 2025Q4

REPORT INFORMATION
  Report Type: Spontaneous
  Country: US (occurrence: US)
  Receive Date: 20251202
  Receipt Date: 20251202
  Transmission Date: 20260118
  Serious: Yes (Hospitalization)
  Sender: SANDOZ
  Company Number: US-MLMSERVICE-20251117-PI717148-00128-1

PATIENT
  Age: 17 Year
  Sex: Female

DRUGS (6)
  1. BLEOMYCIN [Suspect]
     Active Substance: BLEOMYCIN SULFATE
     Indication: Hodgkin^s disease stage III
     Dosage: A COMPLETE RESPONSE AFTER TWO CYCLES, THE ABVE-PC REGIMEN
     Route: 065
  2. CYCLOPHOSPHAMIDE [Suspect]
     Active Substance: CYCLOPHOSPHAMIDE
     Indication: Hodgkin^s disease stage III
     Dosage: A COMPLETE RESPONSE AFTER TWO CYCLES, THE ABVE-PC REGIMEN
     Route: 065
  3. DOXORUBICIN HYDROCHLORIDE [Suspect]
     Active Substance: DOXORUBICIN HYDROCHLORIDE
     Indication: Hodgkin^s disease stage III
     Dosage: A COMPLETE RESPONSE AFTER TWO CYCLES, THE ABVE-PC REGIMEN
     Route: 065
  4. ETOPOSIDE [Suspect]
     Active Substance: ETOPOSIDE
     Indication: Hodgkin^s disease stage III
     Dosage: A COMPLETE RESPONSE AFTER TWO CYCLES, THE ABVE-PC REGIMEN
     Route: 065
  5. PREDNISONE [Suspect]
     Active Substance: PREDNISONE
     Indication: Hodgkin^s disease stage III
     Dosage: A COMPLETE RESPONSE AFTER TWO CYCLES, THE ABVE-PC REGIMEN
     Route: 065
  6. VINCRISTINE [Suspect]
     Active Substance: VINCRISTINE
     Indication: Hodgkin^s disease stage III
     Dosage: A COMPLETE RESPONSE AFTER TWO CYCLES, THE ABVE-PC REGIMEN
     Route: 065

REACTIONS (2)
  - Mucoepidermoid carcinoma of salivary gland [Recovered/Resolved]
  - Second primary malignancy [Recovered/Resolved]
